FAERS Safety Report 8823222 (Version 1)
Quarter: 2012Q4

REPORT INFORMATION
  Report Type: 
  Country: US (occurrence: US)
  Receive Date: 20121003
  Receipt Date: 20121003
  Transmission Date: 20130627
  Serious: Yes (Other)
  Sender: FDA-Public Use
  Company Number: US-BAYER-2012-100530

PATIENT
  Age: 71 Year
  Sex: Male

DRUGS (4)
  1. BAYER GENUINE ASPIRIN ORIGINAL STRENGTH [Suspect]
  2. PLAVIX [Suspect]
     Dosage: UNK
     Dates: start: 2005, end: 2005
  3. COREG [Concomitant]
  4. LASIX [Concomitant]

REACTIONS (1)
  - Epistaxis [Recovered/Resolved]
